FAERS Safety Report 6631470-6 (Version None)
Quarter: 2010Q1

REPORT INFORMATION
  Report Type: 
  Country: None (occurrence: None)
  Receive Date: 20100312
  Receipt Date: 20100303
  Transmission Date: 20100710
  Serious: Yes (Hospitalization)
  Sender: FDA-Public Use
  Company Number: CA-BRISTOL-MYERS SQUIBB COMPANY-15002926

PATIENT
  Age: 64 Year
  Sex: Female

DRUGS (4)
  1. ORENCIA [Suspect]
     Indication: RHEUMATOID ARTHRITIS
     Dosage: NO OF INF:16;LAST INF: 04FEB2010.
     Route: 042
     Dates: start: 20071105
  2. METHOTREXATE [Suspect]
  3. PREDNISONE [Suspect]
  4. PLAQUENIL [Concomitant]

REACTIONS (3)
  - GASTRIC ULCER [None]
  - HYPOPHAGIA [None]
  - WEIGHT DECREASED [None]
